FAERS Safety Report 9359672 (Version 1)
Quarter: 2013Q2

REPORT INFORMATION
  Report Type: Spontaneous
  Country: US (occurrence: US)
  Receive Date: 20130620
  Receipt Date: 20130620
  Transmission Date: 20140414
  Serious: No
  Sender: FDA-Public Use
  Company Number: US-US-EMD SERONO, INC.-7007679

PATIENT
  Sex: Female

DRUGS (1)
  1. SEROPHENE (CLOMIPHENE CITRATE TABLETS,USP) [Suspect]
     Indication: OVULATION INDUCTION
     Dates: start: 20100413

REACTIONS (6)
  - Ovarian cyst [Not Recovered/Not Resolved]
  - Blood glucose increased [Unknown]
  - Menstrual disorder [Unknown]
  - Adnexa uteri pain [Unknown]
  - Migraine [Not Recovered/Not Resolved]
  - Dizziness [Not Recovered/Not Resolved]
